FAERS Safety Report 7880564-6 (Version None)
Quarter: 2011Q4

REPORT INFORMATION
  Report Type: 
  Country: None (occurrence: None)
  Receive Date: 20111101
  Receipt Date: 20100311
  Transmission Date: 20120403
  Serious: No
  Sender: FDA-Public Use
  Company Number: US-BAYER-201016442NA

PATIENT
  Age: 60 Year
  Sex: Male

DRUGS (6)
  1. LEVITRA [Suspect]
     Dosage: 10 MG, PRN
     Route: 048
     Dates: start: 20090901
  2. MAXZIDE [Concomitant]
  3. LEVITRA [Suspect]
     Indication: ERECTILE DYSFUNCTION
     Dosage: 5 MG, UNK
     Dates: start: 20090901
  4. ENALAPRIL [Concomitant]
  5. LIPOFLAVONOID [WITH DEXPANTH,METHION,AND OTHERS] [Concomitant]
  6. CENTRUM [Concomitant]

REACTIONS (4)
  - FLUSHING [None]
  - TREMOR [None]
  - HEADACHE [None]
  - ABNORMAL DREAMS [None]
